FAERS Safety Report 19258306 (Version 1)
Quarter: 2021Q2

REPORT INFORMATION
  Report Type: Spontaneous
  Country: US (occurrence: US)
  Receive Date: 20210514
  Receipt Date: 20210514
  Transmission Date: 20210717
  Serious: Yes (Hospitalization, Other)
  Sender: FDA-Public Use
  Company Number: US-BAYER-2021-137041

PATIENT
  Age: 57 Year
  Sex: Female

DRUGS (5)
  1. CALCITRIOL. [Suspect]
     Active Substance: CALCITRIOL
     Dosage: 0.5 MCG, BID
  2. CALCIUM CARBONATE. [Suspect]
     Active Substance: CALCIUM CARBONATE
     Dosage: 1 G, TIW
  3. CHLORTHALIDONE. [Suspect]
     Active Substance: CHLORTHALIDONE
     Dosage: 25 MG, QD
  4. CHOLECALCIFEROL [Suspect]
     Active Substance: CHOLECALCIFEROL
     Dosage: 10000 DF, QD
  5. IRBESARTAN. [Suspect]
     Active Substance: IRBESARTAN
     Dosage: 300 MG, QD

REACTIONS (4)
  - Labelled drug-drug interaction medication error [None]
  - Hypercalcaemia [None]
  - Milk-alkali syndrome [None]
  - Renal failure [None]
